FAERS Safety Report 4746119-7 (Version None)
Quarter: 2005Q3

REPORT INFORMATION
  Report Type: 
  Country: None (occurrence: None)
  Receive Date: 20050816
  Receipt Date: 20050803
  Transmission Date: 20060218
  Serious: Yes (Life-Threatening, Hospitalization, Other)
  Sender: FDA-Public Use
  Company Number: US-BRISTOL-MYERS SQUIBB COMPANY-13062005

PATIENT
  Age: 69 Year
  Sex: Female

DRUGS (12)
  1. ERBITUX [Suspect]
     Indication: NON-SMALL CELL LUNG CANCER
     Dosage: FIRST DOSE.
     Route: 042
     Dates: start: 20050509, end: 20050509
  2. CARBOPLATIN [Suspect]
     Indication: NON-SMALL CELL LUNG CANCER
     Dosage: DELAYED/OMITTED. START DATE 09-MAY-05, ALSO REC'D 12-JUL-05 (COURSE 4).
     Route: 042
     Dates: start: 20050712, end: 20050712
  3. GEMZAR [Suspect]
     Indication: NON-SMALL CELL LUNG CANCER
     Dosage: START DATE 09-MAY-05, ALSO REC'D 19-JUL-05 (4TH COURSE). DELAYED/OMITTED.
     Route: 042
     Dates: start: 20050719, end: 20050719
  4. ZOFRAN [Concomitant]
     Dates: start: 20050509
  5. DECADRON [Concomitant]
     Dates: start: 20050509
  6. ADVAIR DISKUS 100/50 [Concomitant]
     Dates: start: 20050516
  7. SPIRIVA [Concomitant]
     Dates: start: 20050516
  8. COUMADIN [Concomitant]
     Indication: DEEP VEIN THROMBOSIS
     Dates: start: 20050509, end: 20050101
  9. PREDNISONE [Concomitant]
     Dates: start: 20050615, end: 20050615
  10. AMBIEN [Concomitant]
     Dates: start: 20050509
  11. ARANESP [Concomitant]
     Dates: start: 20050526
  12. OXYGEN [Concomitant]
     Dates: start: 20050509

REACTIONS (18)
  - ACTIVATED PARTIAL THROMBOPLASTIN TIME PROLONGED [None]
  - ANAEMIA [None]
  - BLOOD PH INCREASED [None]
  - BLOOD UREA INCREASED [None]
  - CHRONIC OBSTRUCTIVE PULMONARY DISEASE [None]
  - CONTUSION [None]
  - CULTURE URINE POSITIVE [None]
  - ESCHERICHIA INFECTION [None]
  - FALL [None]
  - HAEMATOCRIT DECREASED [None]
  - HAEMOGLOBIN DECREASED [None]
  - HYPOXIA [None]
  - PNEUMONIA [None]
  - PROTHROMBIN TIME PROLONGED [None]
  - RESPIRATORY FAILURE [None]
  - STREPTOCOCCAL INFECTION [None]
  - SUBDURAL HAEMATOMA [None]
  - THROMBOCYTOPENIA [None]
